FAERS Safety Report 9122902 (Version 1)
Quarter: 2013Q1

REPORT INFORMATION
  Report Type: Spontaneous
  Country: US (occurrence: US)
  Receive Date: 20130227
  Receipt Date: 20130227
  Transmission Date: 20140127
  Serious: No
  Sender: FDA-Public Use
  Company Number: US-GLAXOSMITHKLINE-A0981300A

PATIENT
  Sex: Female

DRUGS (2)
  1. VALTREX [Suspect]
     Indication: GENITAL HERPES
     Dosage: 500MG PER DAY
     Route: 048
     Dates: start: 201010
  2. DIOVAN HCT [Concomitant]

REACTIONS (9)
  - Gastric disorder [Not Recovered/Not Resolved]
  - Epigastric discomfort [Unknown]
  - Gastrooesophageal reflux disease [Unknown]
  - Aphthous stomatitis [Unknown]
  - Mouth ulceration [Unknown]
  - Oral discomfort [Unknown]
  - Tooth disorder [Unknown]
  - Anxiety [Unknown]
  - Drug ineffective [Unknown]
